FAERS Safety Report 5300484-0 (Version None)
Quarter: 2007Q2

REPORT INFORMATION
  Report Type: 
  Country: None (occurrence: None)
  Receive Date: 20070413
  Receipt Date: 20070413
  Transmission Date: 20071010
  Serious: Yes (Other)
  Sender: FDA-Public Use
  Company Number: None

PATIENT
  Sex: Female
  Weight: 67.1324 kg

DRUGS (2)
  1. PAXIL [Suspect]
     Indication: DEPRESSION
     Dosage: 25 MG ONCE DAILY PO
     Route: 048
     Dates: start: 19930615, end: 20070310
  2. PAXIL [Suspect]
     Indication: INSOMNIA
     Dosage: 25 MG ONCE DAILY PO
     Route: 048
     Dates: start: 19930615, end: 20070310

REACTIONS (11)
  - AMNESIA [None]
  - ASTHENIA [None]
  - CRYING [None]
  - DISORIENTATION [None]
  - DRUG DEPENDENCE [None]
  - HOT FLUSH [None]
  - INSOMNIA [None]
  - NIGHT SWEATS [None]
  - PAIN [None]
  - PANIC ATTACK [None]
  - PARAESTHESIA [None]
